FAERS Safety Report 15407273 (Version 2)
Quarter: 2021Q3

REPORT INFORMATION
  Report Type: Spontaneous
  Country: US (occurrence: US)
  Receive Date: 20180920
  Receipt Date: 20210714
  Transmission Date: 20211014
  Serious: Yes (Other)
  Sender: FDA-Public Use
  Company Number: US-SA-2018SA260882

PATIENT
  Age: 71 Year
  Sex: Female
  Weight: 63.5 kg

DRUGS (6)
  1. PARAPLATIN [Concomitant]
     Active Substance: CARBOPLATIN
     Dosage: 122.3 MG, Q3W
     Route: 065
     Dates: start: 20110404, end: 20110404
  2. TAXOTERE [Suspect]
     Active Substance: DOCETAXEL
     Indication: BREAST CANCER FEMALE
     Dosage: 122.3 MG, Q3W
     Route: 065
     Dates: start: 20101220, end: 20101220
  3. PARAPLATIN [Concomitant]
     Active Substance: CARBOPLATIN
     Indication: BREAST CANCER FEMALE
     Dosage: 122.3 MG, Q3W
     Route: 065
     Dates: start: 20101220, end: 20101220
  4. TAXOTERE [Suspect]
     Active Substance: DOCETAXEL
     Dosage: 122.3 MG, Q3W
     Route: 065
     Dates: start: 20110404, end: 20110404
  5. HERCEPTIN [Concomitant]
     Active Substance: TRASTUZUMAB
     Dosage: 122.3 MG, Q3W
     Route: 065
     Dates: start: 20110404, end: 20110404
  6. HERCEPTIN [Concomitant]
     Active Substance: TRASTUZUMAB
     Indication: BREAST CANCER FEMALE
     Dosage: 122.3 MG, Q3W
     Route: 065
     Dates: start: 20101220, end: 20101220

REACTIONS (1)
  - Alopecia [Recovering/Resolving]

NARRATIVE: CASE EVENT DATE: 2011
